FAERS Safety Report 6212240-X (Version None)
Quarter: 2009Q2

REPORT INFORMATION
  Report Type: 
  Country: None (occurrence: None)
  Receive Date: 20090529
  Receipt Date: 20090518
  Transmission Date: 20091009
  Serious: Yes (Hospitalization)
  Sender: FDA-Public Use
  Company Number: CERZ-1000423

PATIENT
  Age: 54 Year
  Sex: Female
  Weight: 82.1 kg

DRUGS (21)
  1. CEREZYME [Suspect]
     Indication: GAUCHER'S DISEASE
     Dosage: 3600 U, Q2W, INTRAVENOUS
     Route: 042
     Dates: start: 19940301
  2. NEURONTIN [Concomitant]
  3. DETROL LA [Concomitant]
  4. CLARITIN [Concomitant]
  5. SINGULAIR [Concomitant]
  6. LEXAPRO [Concomitant]
  7. REMERON [Concomitant]
  8. TRAZODONE HCL [Concomitant]
  9. AMBIEN [Concomitant]
  10. ROZEREM [Concomitant]
  11. ALBUTEROL (SALBUTAMOL SULFATE) [Concomitant]
  12. METOPROLOL XL (METOPROLOL TARTRATE) [Concomitant]
  13. PIROXICAM [Concomitant]
  14. SYNTHROID [Concomitant]
  15. LIPITOR [Concomitant]
  16. PERCOCET [Concomitant]
  17. MULTIVITAMIN [Concomitant]
  18. ULTRAM WITH CALCIUM (TRAMADOL HYDROCHLORIDE WITH CALCIUM) [Concomitant]
  19. FOSAMAX [Concomitant]
  20. IMITREX [Concomitant]
  21. LIDODERM [Concomitant]

REACTIONS (9)
  - BONE PAIN [None]
  - EYE INFECTION [None]
  - FIBULA FRACTURE [None]
  - INTERVERTEBRAL DISC INJURY [None]
  - MYALGIA [None]
  - NEURALGIA [None]
  - SPINAL COMPRESSION FRACTURE [None]
  - TIBIA FRACTURE [None]
  - TOOTH INFECTION [None]
